FAERS Safety Report 5843306-1 (Version None)
Quarter: 2008Q3

REPORT INFORMATION
  Report Type: 
  Country: None (occurrence: None)
  Receive Date: 20080812
  Receipt Date: 20080812
  Transmission Date: 20090109
  Serious: Yes (Other)
  Sender: FDA-Public Use
  Company Number: None

PATIENT
  Sex: Female

DRUGS (1)
  1. MULTIHANCE [Suspect]
     Indication: COMPUTERISED TOMOGRAM
     Dates: start: 20080808, end: 20080808

REACTIONS (2)
  - NAUSEA [None]
  - RETCHING [None]
